FAERS Safety Report 6161554-0 (Version None)
Quarter: 2009Q2

REPORT INFORMATION
  Report Type: 
  Country: None (occurrence: None)
  Receive Date: 20090417
  Receipt Date: 20090417
  Transmission Date: 20091009
  Serious: Yes (Other)
  Sender: FDA-Public Use
  Company Number: None

PATIENT
  Age: 49 Year
  Sex: Female
  Weight: 117.9352 kg

DRUGS (2)
  1. NASONEX [Suspect]
     Indication: NASAL POLYPS
     Dosage: 2 SPRAYS EACH NOSTRIL TWICE DAILY NASAL
     Route: 045
     Dates: start: 20090412, end: 20090416
  2. NASONEX [Suspect]
     Indication: PROPHYLAXIS
     Dosage: 2 SPRAYS EACH NOSTRIL TWICE DAILY NASAL
     Route: 045
     Dates: start: 20090412, end: 20090416

REACTIONS (3)
  - HEADACHE [None]
  - PRODUCT ODOUR ABNORMAL [None]
  - PRODUCT QUALITY ISSUE [None]
